FAERS Safety Report 7282973-5 (Version None)
Quarter: 2010Q4

REPORT INFORMATION
  Report Type: 
  Country: None (occurrence: None)
  Receive Date: 20101221
  Receipt Date: 20100726
  Transmission Date: 20110411
  Serious: Yes (Hospitalization)
  Sender: FDA-Public Use
  Company Number: WAES 1007USA03587

PATIENT
  Age: 65 Year
  Sex: Male

DRUGS (7)
  1. JANUVIA [Suspect]
     Indication: DIABETES MELLITUS
     Dosage: PO
     Route: 048
     Dates: end: 20100101
  2. LEVITRA [Concomitant]
  3. NEXIUM [Concomitant]
  4. ZIAC [Concomitant]
  5. LISINOPRIL [Concomitant]
  6. LORAZEPAM [Concomitant]
  7. SIMVASTATIN [Concomitant]

REACTIONS (1)
  - PANCREATITIS [None]
